FAERS Safety Report 23386176 (Version 2)
Quarter: 2024Q1

REPORT INFORMATION
  Report Type: Report from Study
  Country: US (occurrence: US)
  Receive Date: 20240110
  Receipt Date: 20240114
  Transmission Date: 20240410
  Serious: Yes (Death)
  Sender: FDA-Public Use
  Company Number: US-ABBVIE-5578529

PATIENT
  Sex: Female

DRUGS (16)
  1. VENCLEXTA [Suspect]
     Active Substance: VENETOCLAX
     Indication: Chronic lymphocytic leukaemia
     Dosage: 4 TABLETS (400 MG TOTAL) SWALLOW WHOLE. DO NOT CHEW, CRUSH OR BREAK  PRIOR TO SWALLOWING,?FORM ST...
     Route: 048
     Dates: start: 2023
  2. PROGRAF [Concomitant]
     Active Substance: TACROLIMUS
     Indication: Product used for unknown indication
     Dosage: TAKE 2 CAPSULES (2 MG) EVERY MORNING AND 1 CAPSULE (1 MG) EVERY EVENING,?FORM STRENGTH: 1MILLIGRAM
  3. CALCIUM CARBONATE\VITAMIN D [Concomitant]
     Active Substance: CALCIUM CARBONATE\VITAMIN D
     Indication: Product used for unknown indication
     Dosage: FORM OF ADMIN:625 MG (250 ELEMENTAL)-125 UNITS TAB;1 TABLET 2 (TWO) TIMES A DAY WITH MEALS
  4. PROMACTA [Concomitant]
     Active Substance: ELTROMBOPAG OLAMINE
     Indication: Product used for unknown indication
     Dosage: TAKE 2 TABLETS (150 MG TOTAL).ON AN EMPTY STOMACH, 1 HOUR  BEFORE OR 2 HOURS AFTER A MEAL.,?FORM ...
  5. ARICEPT [Concomitant]
     Active Substance: DONEPEZIL HYDROCHLORIDE
     Indication: Product used for unknown indication
     Dosage: 1 TABLET 2 (TWO) TIMES A DAY WITH MEALS,?FORM STRENGTH: 10MILLIGRAM
  6. ZYLOPRIM [Concomitant]
     Active Substance: ALLOPURINOL
     Indication: Product used for unknown indication
     Dosage: TAKE 1 TABLET (300MG TOTAL) BY MOUTH DAILY,?FORM STRENGTH: 300MILLIGRAM
     Route: 048
  7. SYNTHROID [Concomitant]
     Active Substance: LEVOTHYROXINE SODIUM
     Indication: Product used for unknown indication
     Dosage: TAKE 50 MCG BY MOUTH EVERY MORNING?FORM STRENGTH: 50MICROGRAM
     Route: 048
  8. PRAVACHOL [Concomitant]
     Active Substance: PRAVASTATIN SODIUM
     Indication: Product used for unknown indication
     Dosage: TAKE 1 TABLET (20 MG TOTAL) BY MOUTH EVERY EVENING.?FORM STRENGTH: 20MILLIGRAM
     Route: 048
  9. TYLENOL [Concomitant]
     Active Substance: ACETAMINOPHEN
     Indication: Pain
     Dosage: TAKE 2 TABLETS (650 MG TOTAL) BY MOUTH EVERY 6 (SIX) HOURS,?FORM STRENGTH: 325MILLIGRAM
     Route: 048
  10. VITAMIN B12 [Concomitant]
     Active Substance: CYANOCOBALAMIN
     Indication: Product used for unknown indication
     Dosage: TAKE 1,000 MCG BY MOUTH DAILY,?FORM STRENGTH: 1000MICROGRAM,
     Route: 048
  11. ZOVIRAX [Concomitant]
     Active Substance: ACYCLOVIR
     Indication: Product used for unknown indication
     Dosage: TIME INTERVAL: 0.33333333 DAYS: TAKE 1 TABLET (400 MG TOTAL) BY MOUTH 3 (THREE) TIMES A DAY.
     Route: 048
  12. METROCREAM [Concomitant]
     Active Substance: METRONIDAZOLE
     Indication: Product used for unknown indication
     Dosage: APPLY TOPICALLY 2 (TWO) TIMES A DAY.?FORM STRENGTH: 0.75PERCENT
     Route: 061
  13. FLUOCINONIDE [Concomitant]
     Active Substance: FLUOCINONIDE
     Indication: Product used for unknown indication
     Dosage: APPLY 1 APPLICATION TOPICALLY AS NEEDED.?FORM STRENGTH: 0.05 PERCENT,?0.05 % EXTERNAL SOLUTION
     Route: 061
  14. LEVOTHROID [Concomitant]
     Active Substance: LEVOTHYROXINE SODIUM
     Indication: Product used for unknown indication
     Dosage: TAKE 50 MCG BY MOUTH EVERY MORNING,?FORM STRENGTH: 50MICROGRAM
     Route: 048
  15. MEPRON [Concomitant]
     Active Substance: ATOVAQUONE
     Indication: Product used for unknown indication
     Dosage: TAKE 5 ML (750 MG TOTAL) BY MOUTH EVERY 12 (TWELVE) HOURS; FOA:750MG/5ML SUSPENSION
     Route: 048
  16. DESYREL [Concomitant]
     Active Substance: TRAZODONE HYDROCHLORIDE
     Indication: Insomnia
     Dosage: TAKE 0.5 TABLETS (25 MG TOTAL) BY MOUTH NIGHTLY AT BEDTIME AS NEEDED (INSOMNIA),?FORM STRENGTH: 5...
     Route: 048

REACTIONS (1)
  - Death [Fatal]
